FAERS Safety Report 18366631 (Version 1)
Quarter: 2020Q4

REPORT INFORMATION
  Report Type: Spontaneous
  Country: US (occurrence: US)
  Receive Date: 20201009
  Receipt Date: 20201009
  Transmission Date: 20210114
  Serious: No
  Sender: FDA-Public Use
  Company Number: US-009507513-2009USA011554

PATIENT
  Age: 72 Year
  Sex: Female

DRUGS (2)
  1. MOMETASONE FUROATE. [Suspect]
     Active Substance: MOMETASONE FUROATE
     Dosage: 45GM/ ONCE DAILY
  2. ELOCON [Suspect]
     Active Substance: MOMETASONE FUROATE
     Indication: INFLAMMATION
     Dosage: 45GM/ ONCE DAILY
     Route: 061
     Dates: start: 2001

REACTIONS (3)
  - Drug ineffective [Unknown]
  - Rash [Not Recovered/Not Resolved]
  - Product availability issue [Unknown]

NARRATIVE: CASE EVENT DATE: 20200927
